FAERS Safety Report 9502538 (Version 1)
Quarter: 2013Q3

REPORT INFORMATION
  Report Type: Spontaneous
  Country: US (occurrence: US)
  Receive Date: 20130906
  Receipt Date: 20130906
  Transmission Date: 20140515
  Serious: Yes (Disabling, Other)
  Sender: FDA-Public Use
  Company Number: US-JNJFOC-20130814605

PATIENT
  Sex: Female
  Weight: 81.65 kg

DRUGS (12)
  1. DURAGESIC [Suspect]
     Indication: FACET JOINT SYNDROME
     Route: 062
  2. DURAGESIC [Suspect]
     Indication: FACET JOINT SYNDROME
     Route: 062
  3. DURAGESIC [Suspect]
     Indication: UTERINE CANCER
     Route: 062
  4. DURAGESIC [Suspect]
     Indication: UTERINE CANCER
     Route: 062
  5. DURAGESIC [Suspect]
     Indication: OSTEOGENESIS IMPERFECTA
     Route: 062
  6. DURAGESIC [Suspect]
     Indication: OSTEOGENESIS IMPERFECTA
     Route: 062
  7. UNSPECIFIED GENERIC FENTANYL PATCH [Suspect]
     Indication: FACET JOINT SYNDROME
     Route: 062
  8. UNSPECIFIED GENERIC FENTANYL PATCH [Suspect]
     Indication: UTERINE CANCER
     Route: 062
  9. UNSPECIFIED GENERIC FENTANYL PATCH [Suspect]
     Indication: OSTEOGENESIS IMPERFECTA
     Route: 062
  10. DURAGESIC [Suspect]
     Indication: FACET JOINT SYNDROME
     Dosage: 100 UG/HR   100 UG/HR
     Route: 062
  11. DURAGESIC [Suspect]
     Indication: UTERINE CANCER
     Dosage: 100 UG/HR   100 UG/HR
     Route: 062
  12. DURAGESIC [Suspect]
     Indication: OSTEOGENESIS IMPERFECTA
     Dosage: 100 UG/HR   100 UG/HR
     Route: 062

REACTIONS (8)
  - Bone cancer [Not Recovered/Not Resolved]
  - Disability [Not Recovered/Not Resolved]
  - Bedridden [Not Recovered/Not Resolved]
  - Incontinence [Not Recovered/Not Resolved]
  - Wrong technique in drug usage process [Unknown]
  - Product adhesion issue [Unknown]
  - Pain [Not Recovered/Not Resolved]
  - Drug ineffective [Recovered/Resolved]
